FAERS Safety Report 15365563 (Version 1)
Quarter: 2018Q3

REPORT INFORMATION
  Report Type: Report from Study
  Country: FR (occurrence: FR)
  Receive Date: 20180910
  Receipt Date: 20180910
  Transmission Date: 20181010
  Serious: Yes (Other)
  Sender: FDA-Public Use
  Company Number: FR-ROCHE-GNE211229

PATIENT
  Age: 53 Year
  Sex: Female

DRUGS (4)
  1. METHYLPREDNISOLONE. [Concomitant]
     Active Substance: METHYLPREDNISOLONE
     Dosage: DOSE: 1000 UNIT T NOT PROVIDED
     Route: 065
  2. RITUXIMAB. [Suspect]
     Active Substance: RITUXIMAB
     Indication: CRYOGLOBULINAEMIA
     Route: 042
  3. PREDNISONE. [Concomitant]
     Active Substance: PREDNISONE
     Dosage: DOSE: 20 UNIT NOT PROVIDED
     Route: 065
  4. PREDNISONE. [Concomitant]
     Active Substance: PREDNISONE
     Dosage: DOSE: 7.5 UNIT NOT PROVIDED
     Route: 065

REACTIONS (3)
  - Encephalopathy [Unknown]
  - Intentional product use issue [Unknown]
  - Off label use [Unknown]
